FAERS Safety Report 11158842 (Version 1)
Quarter: 2015Q2

REPORT INFORMATION
  Report Type: Spontaneous
  Country: GB (occurrence: GB)
  Receive Date: 20150603
  Receipt Date: 20150603
  Transmission Date: 20150821
  Serious: Yes (Death, Hospitalization)
  Sender: FDA-Public Use
  Company Number: GB-PFIZER INC-2015182577

PATIENT
  Age: 90 Year
  Sex: Female

DRUGS (8)
  1. TAZOCIN [Suspect]
     Active Substance: PIPERACILLIN SODIUM\TAZOBACTAM SODIUM
     Dosage: 4.5 G, 3X/DAY
     Route: 041
     Dates: start: 20141025
  2. CLOPIDOGREL [Concomitant]
     Active Substance: CLOPIDOGREL BISULFATE
     Dosage: UNK
  3. MEROPENEM. [Concomitant]
     Active Substance: MEROPENEM
     Dosage: UNK
  4. LOPERAMIDE [Concomitant]
     Active Substance: LOPERAMIDE
     Dosage: UNK
     Dates: end: 20141113
  5. VANCOMYCIN [Concomitant]
     Active Substance: VANCOMYCIN
     Dosage: 500 MG, 4X/DAY
     Route: 048
  6. VANCOMYCIN [Concomitant]
     Active Substance: VANCOMYCIN
     Dosage: 125 MG, 4X/DAY
     Route: 048
  7. CO-AMOXICLAV [Concomitant]
     Active Substance: AMOXICILLIN\CLAVULANIC ACID
     Dosage: 375 MG, 3X/DAY
     Dates: start: 20141110
  8. METRONIDAZOLE. [Concomitant]
     Active Substance: METRONIDAZOLE
     Dosage: UNK
     Route: 042
     Dates: start: 20141111

REACTIONS (1)
  - Clostridium difficile colitis [Fatal]

NARRATIVE: CASE EVENT DATE: 20141112
